FAERS Safety Report 14978551 (Version 1)
Quarter: 2018Q2

REPORT INFORMATION
  Report Type: Spontaneous
  Country: GB (occurrence: GB)
  Receive Date: 20180606
  Receipt Date: 20180606
  Transmission Date: 20180711
  Serious: Yes (Other)
  Sender: FDA-Public Use
  Company Number: GB-AUROBINDO-AUR-APL-2018-028706

PATIENT
  Age: 73 Year
  Sex: Male
  Weight: 77.56 kg

DRUGS (3)
  1. GAVISCON ADVANCE                   /00926503/ [Concomitant]
     Indication: PRODUCT USED FOR UNKNOWN INDICATION
     Dosage: UNK
     Route: 065
  2. PERINDOPRIL [Suspect]
     Active Substance: PERINDOPRIL
     Dosage: 4 MILLIGRAM
     Route: 048
     Dates: end: 20180502
  3. PERINDOPRIL [Suspect]
     Active Substance: PERINDOPRIL
     Indication: HYPERTENSION
     Dosage: 2 MILLIGRAM, (INITIALLY 2MG THEN 4MG)
     Route: 048
     Dates: start: 20180306

REACTIONS (5)
  - Rash [Recovered/Resolved]
  - Skin warm [Recovered/Resolved]
  - Withdrawal syndrome [Unknown]
  - Sedation [Recovered/Resolved]
  - Depressed level of consciousness [Recovered/Resolved]

NARRATIVE: CASE EVENT DATE: 20180418
